FAERS Safety Report 19263880 (Version 1)
Quarter: 2021Q2

REPORT INFORMATION
  Report Type: Spontaneous
  Country: US (occurrence: US)
  Receive Date: 20210514
  Receipt Date: 20210514
  Transmission Date: 20210717
  Serious: No
  Sender: FDA-Public Use
  Company Number: None

PATIENT
  Age: 46 Year
  Sex: Male

DRUGS (2)
  1. OTEZLA [Suspect]
     Active Substance: APREMILAST
     Indication: PSORIATIC ARTHROPATHY
     Dosage: OTHER DOSE:TAKE 1 TABLET;  AS DIRECTED?
     Route: 048
     Dates: start: 202102
  2. OTEZLA [Suspect]
     Active Substance: APREMILAST
     Indication: PSORIASIS
     Dosage: OTHER DOSE:TAKE 1 TABLET;  AS DIRECTED?
     Route: 048
     Dates: start: 202102

REACTIONS (2)
  - Therapy interrupted [None]
  - COVID-19 [None]
